FAERS Safety Report 16650798 (Version 1)
Quarter: 2019Q3

REPORT INFORMATION
  Report Type: Spontaneous
  Country: US (occurrence: US)
  Receive Date: 20190730
  Receipt Date: 20190730
  Transmission Date: 20191004
  Serious: Yes (Other)
  Sender: FDA-Public Use
  Company Number: None

PATIENT
  Age: 51 Year
  Sex: Male
  Weight: 108.86 kg

DRUGS (1)
  1. SOMADERM GEL [Suspect]
     Active Substance: HOMEOPATHICS
     Indication: HOMEOPATHY
     Route: 061
     Dates: start: 20180721, end: 20181226

REACTIONS (1)
  - Hypertension [None]

NARRATIVE: CASE EVENT DATE: 20181212
